FAERS Safety Report 15011943 (Version 1)
Quarter: 2018Q2

REPORT INFORMATION
  Report Type: Spontaneous
  Country: IT (occurrence: IT)
  Receive Date: 20180614
  Receipt Date: 20180614
  Transmission Date: 20180711
  Serious: Yes (Hospitalization)
  Sender: FDA-Public Use
  Company Number: IT-PFIZER INC-2018240264

PATIENT
  Age: 40 Year
  Sex: Female

DRUGS (2)
  1. LIBRIUM [Suspect]
     Active Substance: CHLORDIAZEPOXIDE HYDROCHLORIDE
     Dosage: 4 DF, SINGLE
     Route: 048
     Dates: start: 20180128, end: 20180128
  2. XANAX [Suspect]
     Active Substance: ALPRAZOLAM
     Dosage: 50 GTT, SINGLE
     Route: 048
     Dates: start: 20180128, end: 20180128

REACTIONS (2)
  - Psychomotor hyperactivity [Unknown]
  - Drug abuse [Unknown]

NARRATIVE: CASE EVENT DATE: 20180128
